FAERS Safety Report 5613988-8 (Version None)
Quarter: 2008Q1

REPORT INFORMATION
  Report Type: 
  Country: None (occurrence: None)
  Receive Date: 20080130
  Receipt Date: 20080122
  Transmission Date: 20080703
  Serious: Yes (Death)
  Sender: FDA-Public Use
  Company Number: FABR-1000046

PATIENT
  Age: 50 Year
  Sex: Male
  Weight: 54.7 kg

DRUGS (11)
  1. FABRAZYME [Suspect]
     Indication: FABRY'S DISEASE
     Dosage: 1 MG/KG, Q2W, INTRAVENOUS
     Route: 042
     Dates: start: 20030924
  2. COZAAR [Concomitant]
  3. PRAVACHOL [Concomitant]
  4. MEDROL [Concomitant]
  5. RENAL CAPS [Concomitant]
  6. COMBIVENT [Concomitant]
  7. ADVAIR (FLUTICASONE PROPIONATE, SALMETEROL XINAFOATE) INHALER [Concomitant]
  8. COUMADIN [Concomitant]
  9. IMURAN (AZATHIORPINE) [Concomitant]
  10. CYCLOSPORINE [Concomitant]
  11. TEGRETOL [Concomitant]

REACTIONS (4)
  - CARDIAC ARREST [None]
  - FINGER AMPUTATION [None]
  - PNEUMONIA [None]
  - SEPSIS [None]
